FAERS Safety Report 7537598-0 (Version None)
Quarter: 2011Q2

REPORT INFORMATION
  Report Type: 
  Country: None (occurrence: None)
  Receive Date: 20110609
  Receipt Date: 20070628
  Transmission Date: 20111010
  Serious: Yes (Death)
  Sender: FDA-Public Use
  Company Number: PHEH2007US09375

PATIENT
  Sex: Female
  Weight: 69 kg

DRUGS (1)
  1. EXJADE [Suspect]
     Indication: IRON OVERLOAD
     Dosage: 375 UNK, QD
     Route: 048
     Dates: start: 20060608, end: 20070611

REACTIONS (1)
  - DEATH [None]
